FAERS Safety Report 12861536 (Version 1)
Quarter: 2016Q4

REPORT INFORMATION
  Report Type: Spontaneous
  Country: US (occurrence: US)
  Receive Date: 20161019
  Receipt Date: 20161019
  Transmission Date: 20170207
  Serious: No
  Sender: FDA-Public Use
  Company Number: US-PFIZER INC-2016487590

PATIENT
  Age: 57 Year
  Sex: Male

DRUGS (8)
  1. GABAPENTIN. [Suspect]
     Active Substance: GABAPENTIN
     Dosage: UNK
     Dates: start: 201311, end: 201404
  2. MELOXICAM. [Suspect]
     Active Substance: MELOXICAM
     Dosage: 15 MG, UNK
     Dates: start: 201503, end: 201506
  3. BACLOFEN. [Suspect]
     Active Substance: BACLOFEN
     Dosage: 10 MG, UNK
     Dates: start: 201404, end: 201603
  4. CYCLOBENZAPRINE [Suspect]
     Active Substance: CYCLOBENZAPRINE
     Dosage: 10 MG, UNK
     Dates: start: 201103, end: 201401
  5. METHOCARBAMOL. [Suspect]
     Active Substance: METHOCARBAMOL
     Dosage: 500 MG, UNK
     Dates: start: 201201, end: 201207
  6. TRAMADOL. [Suspect]
     Active Substance: TRAMADOL
     Dosage: 50 MG, UNK
     Dates: start: 201311, end: 201503
  7. SULINDAC. [Suspect]
     Active Substance: SULINDAC
     Dosage: 150 MG, UNK
     Dates: start: 201111, end: 201201
  8. IBUPROFEN. [Suspect]
     Active Substance: IBUPROFEN
     Dosage: 800 MG, UNK
     Dates: start: 201504, end: 201603

REACTIONS (1)
  - Drug ineffective [Unknown]
